FAERS Safety Report 9859982 (Version 1)
Quarter: 2014Q1

REPORT INFORMATION
  Report Type: Spontaneous
  Country: US (occurrence: US)
  Receive Date: 20140131
  Receipt Date: 20140131
  Transmission Date: 20141002
  Serious: Yes (Hospitalization, Other)
  Sender: FDA-Public Use
  Company Number: US-RB-062971-14

PATIENT
  Age: 0 None
  Sex: Female

DRUGS (5)
  1. SUBOXONE TABLET [Suspect]
     Indication: DRUG DEPENDENCE
     Route: 064
     Dates: start: 201303, end: 201304
  2. BUPRENORPHINE GENERIC [Suspect]
     Route: 064
     Dates: start: 201304, end: 2013
  3. BUPRENORPHINE GENERIC [Suspect]
     Indication: DRUG DEPENDENCE
     Route: 064
     Dates: start: 2013, end: 20131105
  4. NICOTINE [Suspect]
     Indication: NICOTINE DEPENDENCE
     Dosage: MOTHER SMOKING 10 CIGARETTES A DAY
     Route: 064
     Dates: start: 201303, end: 20131105
  5. ZOFRAN [Concomitant]
     Indication: NAUSEA
     Dosage: DOSING DETAILS UNKNOWN
     Route: 064
     Dates: start: 2013, end: 2013

REACTIONS (5)
  - Foetal exposure during pregnancy [Recovered/Resolved]
  - Premature baby [Recovered/Resolved]
  - Low birth weight baby [Recovering/Resolving]
  - Drug withdrawal syndrome neonatal [Recovered/Resolved]
  - Jaundice neonatal [Recovered/Resolved]
